FAERS Safety Report 10191325 (Version 1)
Quarter: 2014Q2

REPORT INFORMATION
  Report Type: Spontaneous
  Country: US (occurrence: None)
  Receive Date: 20140522
  Receipt Date: 20140522
  Transmission Date: 20141212
  Serious: No
  Sender: FDA-Public Use
  Company Number: None

PATIENT
  Age: 53 Year
  Sex: Male

DRUGS (1)
  1. MODAFINIL 200 MG X 2 PER DAY [Suspect]
     Indication: HYPOPITUITARISM
     Dosage: SINCE ABOUT THE 25TH OF MARCH 20, 2 PER DAY, TWICE DAILY, ORAL
     Route: 048

REACTIONS (7)
  - Drug effect increased [None]
  - Euphoric mood [None]
  - Dyspnoea [None]
  - Exercise tolerance decreased [None]
  - Emotional disorder [None]
  - Somnolence [None]
  - Product substitution issue [None]
